FAERS Safety Report 17350579 (Version 1)
Quarter: 2020Q1

REPORT INFORMATION
  Report Type: Spontaneous
  Country: ES (occurrence: ES)
  Receive Date: 20200130
  Receipt Date: 20200130
  Transmission Date: 20200409
  Serious: Yes (Life-Threatening, Hospitalization)
  Sender: FDA-Public Use
  Company Number: ES-MYLANLABS-2020M1011016

PATIENT
  Age: 86 Year
  Sex: Female

DRUGS (4)
  1. METAMIZOL                          /06276701/ [Interacting]
     Active Substance: METAMIZOLE
     Indication: PAIN
     Dosage: 575 MILLIGRAM, Q8H
     Route: 048
     Dates: start: 20190808
  2. SINTROM [Interacting]
     Active Substance: ACENOCOUMAROL
     Indication: DEEP VEIN THROMBOSIS
     Dosage: UNK
     Route: 048
     Dates: start: 2010, end: 20190812
  3. TRAMADOL. [Suspect]
     Active Substance: TRAMADOL
     Indication: PAIN
     Dosage: 250 MILLIGRAM, TOTAL
     Route: 048
     Dates: start: 20190726, end: 20190812
  4. PARACETAMOL [Interacting]
     Active Substance: ACETAMINOPHEN
     Indication: PAIN
     Dosage: 1 GRAM, Q8H
     Route: 048
     Dates: start: 20190808

REACTIONS (2)
  - Upper gastrointestinal haemorrhage [Recovered/Resolved]
  - Drug interaction [Unknown]

NARRATIVE: CASE EVENT DATE: 20190811
